FAERS Safety Report 18422101 (Version 1)
Quarter: 2020Q4

REPORT INFORMATION
  Report Type: Spontaneous
  Country: US (occurrence: US)
  Receive Date: 20201023
  Receipt Date: 20201023
  Transmission Date: 20210114
  Serious: Yes (Death, Hospitalization, Other)
  Sender: FDA-Public Use
  Company Number: US-SA-2020SA297572

PATIENT

DRUGS (1)
  1. ENOXAPARIN SODIUM. [Suspect]
     Active Substance: ENOXAPARIN SODIUM
     Dosage: UNK
     Route: 042

REACTIONS (11)
  - Abdominal compartment syndrome [Unknown]
  - Abdominal wall haematoma [Fatal]
  - Necrosis [Unknown]
  - Haemoperitoneum [Unknown]
  - Unresponsive to stimuli [Recovered/Resolved]
  - Arterial haemorrhage [Unknown]
  - Abdominal pain [Unknown]
  - Shock haemorrhagic [Fatal]
  - Hypotension [Unknown]
  - Condition aggravated [Unknown]
  - Multiple organ dysfunction syndrome [Fatal]
